FAERS Safety Report 14010372 (Version 5)
Quarter: 2017Q4

REPORT INFORMATION
  Report Type: Report from Study
  Country: US (occurrence: US)
  Receive Date: 20170926
  Receipt Date: 20171120
  Transmission Date: 20180321
  Serious: Yes (Other)
  Sender: FDA-Public Use
  Company Number: US-CLOVIS ONCOLOGY-CLO-2017-000915

PATIENT
  Age: 81 Year
  Sex: Female

DRUGS (2)
  1. RUBRACA [Suspect]
     Active Substance: RUCAPARIB CAMSYLATE
     Indication: OVARIAN CANCER
     Dosage: 300 MG, BID
     Route: 048
     Dates: start: 20170815, end: 20170816
  2. RUBRACA [Suspect]
     Active Substance: RUCAPARIB CAMSYLATE
     Indication: BREAST CANCER
     Dosage: 300 MG IN AM AND 600MG, IN PM
     Route: 048
     Dates: start: 20170815, end: 20171004

REACTIONS (18)
  - Acute myeloid leukaemia [Unknown]
  - White blood cell count decreased [Unknown]
  - Platelet count decreased [Not Recovered/Not Resolved]
  - Anaemia [Unknown]
  - Bone marrow failure [Not Recovered/Not Resolved]
  - Thrombocytopenia [Unknown]
  - Fatigue [Not Recovered/Not Resolved]
  - Asthenia [Unknown]
  - Diarrhoea [Unknown]
  - Haemoglobin decreased [Not Recovered/Not Resolved]
  - Dehydration [Unknown]
  - Neuralgia [Unknown]
  - Off label use [Unknown]
  - Blood count abnormal [Unknown]
  - Dizziness [Unknown]
  - Arthralgia [Unknown]
  - Accidental underdose [Unknown]
  - Underdose [Unknown]

NARRATIVE: CASE EVENT DATE: 2017
